FAERS Safety Report 23486832 (Version 1)
Quarter: 2024Q1

REPORT INFORMATION
  Report Type: Spontaneous
  Country: CN (occurrence: CN)
  Receive Date: 20240206
  Receipt Date: 20240206
  Transmission Date: 20240410
  Serious: Yes (Other)
  Sender: FDA-Public Use
  Company Number: CN-PFIZER INC-PV202400016259

PATIENT
  Age: 70 Year
  Sex: Male
  Weight: 68 kg

DRUGS (1)
  1. PAXLOVID [Suspect]
     Active Substance: NIRMATRELVIR\RITONAVIR
     Indication: Therapeutic procedure
     Dosage: 1 DF, 2X/DAY
     Route: 048
     Dates: start: 20231222, end: 20231222

REACTIONS (5)
  - Hypotension [Recovered/Resolved]
  - White blood cell count increased [Unknown]
  - Blood creatinine increased [Unknown]
  - Blood uric acid increased [Unknown]
  - Heart rate decreased [Unknown]

NARRATIVE: CASE EVENT DATE: 20231223
